FAERS Safety Report 7841969-2 (Version None)
Quarter: 2011Q4

REPORT INFORMATION
  Report Type: 
  Country: None (occurrence: None)
  Receive Date: 20111025
  Receipt Date: 20111012
  Transmission Date: 20120403
  Serious: Yes (Other)
  Sender: FDA-Public Use
  Company Number: DE-AMGEN-DEUSP2011052435

PATIENT
  Age: 70 Year
  Sex: Female
  Weight: 40 kg

DRUGS (4)
  1. ENBREL [Suspect]
     Indication: RHEUMATOID ARTHRITIS
     Dosage: 25 MG, 2X/WEEK
     Dates: start: 19990101
  2. CORTISONE ACETATE [Concomitant]
     Indication: RHEUMATOID ARTHRITIS
     Dosage: 10 MG, UNK
  3. CLINDAMYCIN HCL [Suspect]
     Indication: NASOPHARYNGITIS
     Dosage: 300 MG, 3X/DAY
  4. METHOTREXATE SODIUM [Concomitant]
     Indication: RHEUMATOID ARTHRITIS
     Dosage: UNK

REACTIONS (13)
  - PYREXIA [None]
  - DRUG INTOLERANCE [None]
  - NASOPHARYNGITIS [None]
  - EYE INFLAMMATION [None]
  - DRUG EFFECT DECREASED [None]
  - DELUSION [None]
  - INCORRECT DOSE ADMINISTERED [None]
  - SURGERY [None]
  - NAUSEA [None]
  - FEELING ABNORMAL [None]
  - RHEUMATOID ARTHRITIS [None]
  - MEDICATION ERROR [None]
  - INJECTION SITE PAIN [None]
